FAERS Safety Report 15719342 (Version 1)
Quarter: 2018Q4

REPORT INFORMATION
  Report Type: Spontaneous
  Country: US (occurrence: US)
  Receive Date: 20181129
  Receipt Date: 20181129
  Transmission Date: 20190205
  Serious: No
  Sender: FDA-Public Use
  Company Number: None

PATIENT
  Age: 57 Year
  Sex: Female
  Weight: 88 kg

DRUGS (1)
  1. H.P. ACTHAR [Suspect]
     Active Substance: CORTICOTROPIN
     Indication: CUTANEOUS LUPUS ERYTHEMATOSUS
     Dosage: ?          OTHER FREQUENCY:2 X WK;?
     Route: 058
     Dates: start: 201803

REACTIONS (1)
  - Rash [None]
